FAERS Safety Report 7914000-8 (Version None)
Quarter: 2011Q4

REPORT INFORMATION
  Report Type: 
  Country: None (occurrence: None)
  Receive Date: 20111114
  Receipt Date: 20111114
  Transmission Date: 20120403
  Serious: Yes (Hospitalization)
  Sender: FDA-Public Use
  Company Number: None

PATIENT
  Sex: Male
  Weight: 80.7 kg

DRUGS (4)
  1. DOXORUBICIN HCL [Suspect]
     Dosage: 142.5 MG
  2. PEG-L- ASPARAGINASE (K- H) [Suspect]
     Dosage: 4750 MG
  3. VINCRISTINE SULFATE [Suspect]
     Dosage: 4 MG
  4. METHOTREXATE [Suspect]
     Dosage: 15 MG

REACTIONS (2)
  - BRAIN HERNIATION [None]
  - CEREBRAL THROMBOSIS [None]
